FAERS Safety Report 16934910 (Version 2)
Quarter: 2019Q4

REPORT INFORMATION
  Report Type: Spontaneous
  Country: CH (occurrence: CH)
  Receive Date: 20191018
  Receipt Date: 20191030
  Transmission Date: 20200122
  Serious: Yes (Hospitalization)
  Sender: FDA-Public Use
  Company Number: CH-JNJFOC-20191025296

PATIENT
  Age: 56 Year
  Sex: Female

DRUGS (21)
  1. DARZALEX [Suspect]
     Active Substance: DARATUMUMAB
     Indication: PLASMA CELL MYELOMA
     Dosage: IN TOTAL
     Route: 042
     Dates: start: 20190919, end: 20190919
  2. PANTOPRAZOLE [Concomitant]
     Active Substance: PANTOPRAZOLE
     Route: 065
  3. ASPIRIN CARDIO [Concomitant]
     Active Substance: ASPIRIN
     Route: 065
  4. CALCITONIN [Concomitant]
     Active Substance: CALCITONIN
     Indication: HYPERCALCAEMIA
     Route: 065
     Dates: start: 20190901, end: 20190903
  5. REVLIMID [Concomitant]
     Active Substance: LENALIDOMIDE
     Indication: PLASMA CELL MYELOMA
     Dosage: RECHALLENGE AB 01.10.2019
     Route: 065
     Dates: start: 20190919, end: 20190919
  6. HUMALOG MIX [Concomitant]
     Active Substance: INSULIN LISPRO
     Dosage: 25 IU
     Route: 058
  7. ELTROXIN [Concomitant]
     Active Substance: LEVOTHYROXINE
     Route: 065
  8. CIPRALEX [Concomitant]
     Active Substance: ESCITALOPRAM OXALATE
     Route: 065
  9. MOVICOL [Concomitant]
     Active Substance: POLYETHYLENE GLYCOL 3350\POTASSIUM CHLORIDE\SODIUM BICARBONATE\SODIUM CHLORIDE
     Route: 065
  10. ZOMETA [Concomitant]
     Active Substance: ZOLEDRONIC ACID
     Indication: HYPERCALCAEMIA
     Route: 065
     Dates: start: 20190901
  11. DUROGESIC [Concomitant]
     Active Substance: FENTANYL
     Indication: CANCER PAIN
     Dosage: 75MCG/HR
     Route: 065
  12. DUROGESIC [Concomitant]
     Active Substance: FENTANYL
     Indication: PAIN
  13. OXYNORM [Concomitant]
     Active Substance: OXYCODONE HYDROCHLORIDE
     Dosage: AS NECESSARY
     Route: 065
  14. OLANZAPINE. [Concomitant]
     Active Substance: OLANZAPINE
     Route: 065
  15. DEXAMETHASON [Concomitant]
     Active Substance: DEXAMETHASONE
     Indication: PLASMA CELL MYELOMA
     Dosage: RECHALLENGE AB 01.10.2019
     Route: 065
     Dates: start: 20190919, end: 20190919
  16. IPRAMOL [Concomitant]
     Active Substance: ALBUTEROL SULFATE\IPRATROPIUM BROMIDE
     Route: 065
  17. SYMBICORT [Concomitant]
     Active Substance: BUDESONIDE\FORMOTEROL FUMARATE DIHYDRATE
     Indication: PRODUCT USED FOR UNKNOWN INDICATION
     Dosage: 200/6
     Route: 065
  18. DUROGESIC [Concomitant]
     Active Substance: FENTANYL
     Indication: PAIN
  19. TOREM                              /01036501/ [Concomitant]
     Active Substance: TORSEMIDE
     Route: 065
  20. METFORMIN [Concomitant]
     Active Substance: METFORMIN HYDROCHLORIDE
     Route: 065
  21. SURMONTIL [Concomitant]
     Active Substance: TRIMIPRAMINE MALEATE
     Route: 065

REACTIONS (3)
  - Infusion related reaction [Recovered/Resolved]
  - Bronchospasm [Recovered/Resolved]
  - Dermatitis allergic [Recovered/Resolved]

NARRATIVE: CASE EVENT DATE: 20190919
